FAERS Safety Report 10518992 (Version 1)
Quarter: 2014Q4

REPORT INFORMATION
  Report Type: Spontaneous
  Country: US (occurrence: None)
  Receive Date: 20141014
  Receipt Date: 20141014
  Transmission Date: 20150528
  Serious: No
  Sender: FDA-Public Use
  Company Number: None

PATIENT
  Age: 37 Year
  Sex: Male

DRUGS (1)
  1. TEFLARO [Suspect]
     Active Substance: CEFTAROLINE FOSAMIL
     Route: 042
     Dates: start: 20140709, end: 20140709

REACTIONS (4)
  - Dysarthria [None]
  - Eye disorder [None]
  - Throat lesion [None]
  - Tongue disorder [None]
